FAERS Safety Report 5350941-6 (Version None)
Quarter: 2007Q2

REPORT INFORMATION
  Report Type: 
  Country: None (occurrence: None)
  Receive Date: 20070608
  Receipt Date: 20070604
  Transmission Date: 20071010
  Serious: Yes (Other)
  Sender: FDA-Public Use
  Company Number: JP-MERCK-0705USA00221

PATIENT
  Age: 21 Year
  Sex: Male

DRUGS (3)
  1. PROPECIA [Suspect]
     Indication: MALE PATTERN BALDNESS
     Route: 048
     Dates: start: 20070101, end: 20070416
  2. [THERAPY UNSPECIFIED] [Concomitant]
     Indication: SEASONAL ALLERGY
     Route: 048
     Dates: start: 20070201, end: 20070301
  3. [THERAPY UNSPECIFIED] [Concomitant]
     Route: 048
     Dates: start: 20070201, end: 20070301

REACTIONS (4)
  - BLOOD CREATINE PHOSPHOKINASE INCREASED [None]
  - ERYTHEMA [None]
  - PARAESTHESIA [None]
  - SKIN DISCOMFORT [None]
